FAERS Safety Report 5464250-8 (Version None)
Quarter: 2007Q3

REPORT INFORMATION
  Report Type: 
  Country: None (occurrence: None)
  Receive Date: 20070921
  Receipt Date: 20070912
  Transmission Date: 20080115
  Serious: Yes (Hospitalization)
  Sender: FDA-Public Use
  Company Number: GB-ROCHE-508215

PATIENT
  Age: 54 Year
  Sex: Male
  Weight: 115 kg

DRUGS (8)
  1. XENICAL [Suspect]
     Indication: OBESITY
     Route: 048
     Dates: start: 20070620, end: 20070701
  2. FLUOXETINE [Concomitant]
     Indication: DEPRESSION
     Route: 048
  3. LEVOTHYROXINE SODIUM [Concomitant]
     Indication: HYPOTHYROIDISM
     Route: 048
  4. FRUSEMIDE [Concomitant]
  5. ESOMEPRAZOLE MAGNESIUM [Concomitant]
  6. ATORVASTATIN CALCIUM [Concomitant]
  7. ASPIRIN [Concomitant]
     Dosage: REPORTED AS: 1 SMALL ASPIRIN DAILY
  8. DULOXETINE [Concomitant]

REACTIONS (1)
  - NEPHROLITHIASIS [None]
